FAERS Safety Report 24877086 (Version 2)
Quarter: 2025Q1

REPORT INFORMATION
  Report Type: Spontaneous
  Country: DO (occurrence: DO)
  Receive Date: 20250123
  Receipt Date: 20250221
  Transmission Date: 20250409
  Serious: Yes (Other)
  Sender: ROCHE
  Company Number: DO-ROCHE-10000187052

PATIENT
  Age: 82 Year
  Sex: Male

DRUGS (1)
  1. VABYSMO [Suspect]
     Active Substance: FARICIMAB-SVOA
     Indication: Macular degeneration
     Route: 065

REACTIONS (2)
  - Endophthalmitis [Unknown]
  - Ocular vasculitis [Unknown]
